FAERS Safety Report 9647675 (Version 1)
Quarter: 2013Q4

REPORT INFORMATION
  Report Type: Spontaneous
  Country: US (occurrence: US)
  Receive Date: 20131028
  Receipt Date: 20131028
  Transmission Date: 20140711
  Serious: No
  Sender: FDA-Public Use
  Company Number: US-B.I. PHARMACEUTICALS,INC./RIDGEFIELD-2013-BI-32857BP

PATIENT
  Age: 15 Year
  Sex: Male
  Weight: 25 kg

DRUGS (6)
  1. FLOMAX CAPSULES [Suspect]
     Indication: URINARY INCONTINENCE
     Dosage: 0.4 MG
     Dates: start: 201308, end: 201308
  2. CLONIDINE [Concomitant]
     Indication: SLEEP DISORDER
     Dosage: 0.3 MG
  3. NEURONTIN [Concomitant]
     Indication: NEUROPATHY PERIPHERAL
     Dosage: 1200 MG
  4. KLONOPIN [Concomitant]
     Indication: SLEEP DISORDER
     Dosage: 0.75 MG
  5. NEXIUM [Concomitant]
     Indication: GASTROOESOPHAGEAL REFLUX DISEASE
     Dosage: 20 MG
  6. ATROPINE EYE DROPS INSIDE OF CHEEKS [Concomitant]
     Indication: DROOLING
     Dosage: EYE DROPS, STRENGTH: 2 DROPS
     Route: 061

REACTIONS (2)
  - Off label use [Recovered/Resolved]
  - Off label use [Recovered/Resolved]
